FAERS Safety Report 9396791 (Version 2)
Quarter: 2014Q1

REPORT INFORMATION
  Report Type: Report from Study
  Country: DE (occurrence: DE)
  Receive Date: 20130712
  Receipt Date: 20140206
  Transmission Date: 20141002
  Serious: Yes (Hospitalization, Other)
  Sender: FDA-Public Use
  Company Number: DE-ROCHE-1246153

PATIENT
  Age: 69 Year
  Sex: Female
  Weight: 72 kg

DRUGS (2)
  1. RITUXIMAB [Suspect]
     Indication: RHEUMATOID ARTHRITIS
     Route: 042
     Dates: start: 20120917
  2. PREDNISOLON [Concomitant]
     Indication: RHEUMATOID ARTHRITIS
     Route: 048
     Dates: start: 20130228

REACTIONS (5)
  - Liver function test abnormal [Recovered/Resolved with Sequelae]
  - Neutropenia [Recovering/Resolving]
  - Hepatic steatosis [Unknown]
  - Splenomegaly [Unknown]
  - Gallbladder cholesterolosis [Unknown]
